FAERS Safety Report 5714497-8 (Version None)
Quarter: 2008Q2

REPORT INFORMATION
  Report Type: 
  Country: None (occurrence: None)
  Receive Date: 20080423
  Receipt Date: 20080415
  Transmission Date: 20081010
  Serious: Yes (Hospitalization, Other)
  Sender: FDA-Public Use
  Company Number: PHHY2008JP02400

PATIENT
  Age: 60 Year
  Sex: Male
  Weight: 105 kg

DRUGS (16)
  1. LAMISIL [Suspect]
     Indication: ONYCHOMYCOSIS
     Dosage: 125 MG/ DAY
     Route: 048
     Dates: start: 20070721, end: 20070803
  2. SELBEX [Concomitant]
     Dosage: 1 DF, UNK
     Route: 048
  3. ALOSITOL [Concomitant]
     Indication: HYPERURICAEMIA
     Dosage: 100 MG/DAY
     Route: 048
  4. MIGLITOL [Concomitant]
     Indication: DIABETES MELLITUS
     Dosage: 50 MG/DAY
     Route: 048
  5. AMLODIN [Concomitant]
     Indication: HYPERTENSION
     Dosage: 5 MG/DAY
     Route: 048
  6. BLOPRESS [Concomitant]
     Indication: HYPERTENSION
     Dosage: 2 MG/DAY
     Route: 048
  7. ARTIST [Concomitant]
     Indication: HYPERTENSION
     Dosage: 20 MG/DAY
     Route: 048
  8. SANOREX [Concomitant]
     Indication: OBESITY
     Dosage: 0.5 MG/DAY
     Route: 048
  9. GLYCORAN [Concomitant]
     Indication: DIABETES MELLITUS
     Dosage: 250 MG/DAY
     Route: 048
  10. CARBENIN [Concomitant]
     Dosage: 1 G/DAY
     Route: 042
     Dates: start: 20070821, end: 20070827
  11. ZITHROMAX [Concomitant]
     Dosage: 2 DF/DAY
     Route: 048
     Dates: start: 20070821, end: 20070823
  12. LEVOFLOXACIN [Concomitant]
     Dosage: 4 DF/DAY
     Route: 048
     Dates: start: 20070825, end: 20070831
  13. SOLU-MEDROL [Concomitant]
     Indication: INTERSTITIAL LUNG DISEASE
     Dosage: 1 G/DAY
     Route: 042
     Dates: end: 20070829
  14. SOLU-MEDROL [Concomitant]
     Dosage: 100 MG/DAY
     Route: 042
     Dates: start: 20070830, end: 20070904
  15. SOLU-MEDROL [Concomitant]
     Dosage: 80 MG/DAY
     Route: 042
     Dates: start: 20070905
  16. PREDNISOLONE [Concomitant]
     Indication: INTERSTITIAL LUNG DISEASE
     Dosage: 5 MG/DAY

REACTIONS (12)
  - ACUTE RESPIRATORY DISTRESS SYNDROME [None]
  - BLOOD IMMUNOGLOBULIN E INCREASED [None]
  - COMPUTERISED TOMOGRAM ABNORMAL [None]
  - DYSPNOEA [None]
  - ENDOTRACHEAL INTUBATION [None]
  - HAEMOPTYSIS [None]
  - INTERSTITIAL LUNG DISEASE [None]
  - LUNG DISORDER [None]
  - LYMPHOCYTE STIMULATION TEST POSITIVE [None]
  - OXYGEN SATURATION DECREASED [None]
  - PYREXIA [None]
  - WHITE BLOOD CELL COUNT INCREASED [None]
